FAERS Safety Report 12926035 (Version 1)
Quarter: 2016Q4

REPORT INFORMATION
  Report Type: Spontaneous
  Country: GR (occurrence: GR)
  Receive Date: 20161109
  Receipt Date: 20161109
  Transmission Date: 20170207
  Serious: Yes (Death, Life-Threatening, Other)
  Sender: FDA-Public Use
  Company Number: GR-ELI_LILLY_AND_COMPANY-GR201611001295

PATIENT

DRUGS (8)
  1. GEMCITABINE HYDROCHLORIDE. [Suspect]
     Active Substance: GEMCITABINE HYDROCHLORIDE
     Dosage: 30-MINUTE, ESCALATED DOSES, EVERY TWO WEEKS
     Route: 042
     Dates: start: 2010
  2. ONDANSETRON [Concomitant]
     Active Substance: ONDANSETRON
     Indication: PRODUCT USED FOR UNKNOWN INDICATION
     Dosage: 16 MG, UNKNOWN
     Route: 042
  3. GEMCITABINE HYDROCHLORIDE. [Suspect]
     Active Substance: GEMCITABINE HYDROCHLORIDE
     Indication: PLEURAL EFFUSION
     Dosage: 30-MINUTE, ESCALATED DOSES, EVERY TWO WEEKS
     Route: 042
     Dates: start: 2010
  4. GEMCITABINE HYDROCHLORIDE. [Suspect]
     Active Substance: GEMCITABINE HYDROCHLORIDE
     Indication: NON-SMALL CELL LUNG CANCER STAGE IV
     Dosage: 30-MINUTE, ESCALATED DOSES, EVERY TWO WEEKS
     Route: 042
     Dates: start: 201005
  5. CARBOPLATIN. [Suspect]
     Active Substance: CARBOPLATIN
     Indication: PLEURAL EFFUSION
     Dosage: 90-MINUTE INFUSION, ESCALATED DOSES, EVERY TWO WEEKS
     Route: 042
     Dates: start: 2010
  6. CARBOPLATIN. [Suspect]
     Active Substance: CARBOPLATIN
     Dosage: 90-MINUTE INFUSION, ESCALATED DOSES, EVERY TWO WEEKS
     Route: 065
     Dates: start: 2010
  7. CARBOPLATIN. [Suspect]
     Active Substance: CARBOPLATIN
     Indication: NON-SMALL CELL LUNG CANCER STAGE IV
     Dosage: 90-MINUTE INFUSION, ESCALATED DOSES, EVERY TWO WEEKS
     Route: 042
     Dates: start: 201005
  8. DEXAMETHASONE. [Concomitant]
     Active Substance: DEXAMETHASONE
     Indication: PRODUCT USED FOR UNKNOWN INDICATION
     Dosage: 16 MG, UNKNOWN
     Route: 042

REACTIONS (3)
  - Acute kidney injury [Fatal]
  - Nephropathy toxic [Unknown]
  - Thrombocytopenia [Unknown]

NARRATIVE: CASE EVENT DATE: 2010
